FAERS Safety Report 13793308 (Version 1)
Quarter: 2017Q3

REPORT INFORMATION
  Report Type: Report from Study
  Country: US (occurrence: US)
  Receive Date: 20170726
  Receipt Date: 20170726
  Transmission Date: 20171127
  Serious: Yes (Other)
  Sender: FDA-Public Use
  Company Number: US-PFIZER INC-2017244185

PATIENT
  Age: 61 Year
  Sex: Female

DRUGS (1)
  1. IBRANCE [Suspect]
     Active Substance: PALBOCICLIB
     Indication: BREAST CANCER
     Dosage: 125 MG, CYCLIC (ONCE DAILY FOR 21 DAYS IN A ROW FOLLOWED BY 7 DAYS OFF EVERY 28 DAYS)
     Route: 048
     Dates: start: 20170515

REACTIONS (22)
  - Nausea [Not Recovered/Not Resolved]
  - Abdominal pain [Unknown]
  - White blood cell count decreased [Not Recovered/Not Resolved]
  - Dehydration [Not Recovered/Not Resolved]
  - Decreased appetite [Not Recovered/Not Resolved]
  - Fatigue [Not Recovered/Not Resolved]
  - Diarrhoea [Unknown]
  - Dyspepsia [Not Recovered/Not Resolved]
  - Liver function test abnormal [Unknown]
  - Psychiatric symptom [Unknown]
  - Pyrexia [Unknown]
  - Tenderness [Unknown]
  - Feeling abnormal [Recovering/Resolving]
  - Vomiting [Unknown]
  - Pruritus [Unknown]
  - Dry skin [Unknown]
  - Asthenia [Not Recovered/Not Resolved]
  - Chills [Unknown]
  - Erythema [Unknown]
  - Cough [Unknown]
  - Emotional disorder [Unknown]
  - Swelling [Unknown]

NARRATIVE: CASE EVENT DATE: 201706
